FAERS Safety Report 14390050 (Version 2)
Quarter: 2018Q1

REPORT INFORMATION
  Report Type: Spontaneous
  Country: US (occurrence: US)
  Receive Date: 20180115
  Receipt Date: 20180207
  Transmission Date: 20180509
  Serious: No
  Sender: FDA-Public Use
  Company Number: US-ARALEZ PHARMACEUTICALS R+D INC.-2018-ARA-000025

PATIENT

DRUGS (2)
  1. TOPROL XL [Suspect]
     Active Substance: METOPROLOL SUCCINATE
     Indication: SUPRAVENTRICULAR TACHYCARDIA
     Dosage: 25 MG, BID
     Route: 065
     Dates: end: 20171031
  2. TOPROL XL [Suspect]
     Active Substance: METOPROLOL SUCCINATE
     Dosage: 25 MG, BID
     Route: 065
     Dates: start: 20171031, end: 20180103

REACTIONS (2)
  - Off label use [Unknown]
  - Heart rate irregular [Unknown]

NARRATIVE: CASE EVENT DATE: 20171031
